FAERS Safety Report 25675735 (Version 1)
Quarter: 2025Q3

REPORT INFORMATION
  Report Type: Spontaneous
  Country: CN (occurrence: CN)
  Receive Date: 20250813
  Receipt Date: 20250813
  Transmission Date: 20251020
  Serious: Yes (Hospitalization, Other)
  Sender: COSETTE PHARMACEUTICALS INC
  Company Number: CN-SA-2025SA223131

PATIENT
  Age: 18 Year
  Sex: Female
  Weight: 60 kg

DRUGS (3)
  1. AMBIEN [Suspect]
     Active Substance: ZOLPIDEM TARTRATE
     Indication: Product used for unknown indication
     Route: 048
     Dates: start: 20250723, end: 20250723
  2. CLONAZEPAM [Suspect]
     Active Substance: CLONAZEPAM
     Indication: Product used for unknown indication
     Route: 048
     Dates: start: 20250723, end: 20250723
  3. CLONAZEPAM [Suspect]
     Active Substance: CLONAZEPAM

REACTIONS (8)
  - Soliloquy [Recovering/Resolving]
  - Discomfort [Recovering/Resolving]
  - Dysphoria [Recovering/Resolving]
  - Poor quality sleep [Recovering/Resolving]
  - Mood altered [Recovering/Resolving]
  - Malaise [Recovering/Resolving]
  - Hallucination [Recovering/Resolving]
  - Intentional overdose [Unknown]

NARRATIVE: CASE EVENT DATE: 20250723
